FAERS Safety Report 6466580-X (Version None)
Quarter: 2009Q4

REPORT INFORMATION
  Report Type: 
  Country: None (occurrence: None)
  Receive Date: 20091201
  Receipt Date: 20091201
  Transmission Date: 20100525
  Serious: No
  Sender: FDA-Public Use
  Company Number: None

PATIENT
  Age: 47 Year
  Sex: Female
  Weight: 70.3075 kg

DRUGS (1)
  1. ANTIFUNGAL LOTION 1.0 % TOLNAFTATE HOMEHEALTH COMPANY [Suspect]
     Indication: SKIN ODOUR ABNORMAL
     Dosage: THIN LAYER MASSAGED INTO FEET 1X PER DAY TOP
     Route: 061
     Dates: start: 20091102, end: 20091124

REACTIONS (3)
  - CAPILLARY DISORDER [None]
  - DERMATITIS [None]
  - DRUG HYPERSENSITIVITY [None]
